FAERS Safety Report 21994013 (Version 2)
Quarter: 2023Q1

REPORT INFORMATION
  Report Type: Spontaneous
  Country: PT (occurrence: PT)
  Receive Date: 20230215
  Receipt Date: 20230313
  Transmission Date: 20230417
  Serious: Yes (Other)
  Sender: FDA-Public Use
  Company Number: PT-002147023-NVSC2021PT158973

PATIENT
  Age: 29 Year
  Sex: Female

DRUGS (2)
  1. DICLOFENAC [Suspect]
     Active Substance: DICLOFENAC
     Indication: Back pain
     Dosage: 1 DOSAGE FORM (SINGLE DOSE)
     Route: 030
  2. ACETAMINOPHEN [Suspect]
     Active Substance: ACETAMINOPHEN
     Indication: Back pain
     Dosage: 5 DAY COURSE
     Route: 030

REACTIONS (2)
  - Delivery [Unknown]
  - Maternal exposure during pregnancy [Unknown]
